FAERS Safety Report 6460533-3 (Version None)
Quarter: 2009Q4

REPORT INFORMATION
  Report Type: 
  Country: None (occurrence: None)
  Receive Date: 20091130
  Receipt Date: 20091124
  Transmission Date: 20100525
  Serious: Yes (Life-Threatening, Hospitalization)
  Sender: FDA-Public Use
  Company Number: DE-JNJFOC-20091101889

PATIENT
  Age: 70 Year
  Sex: Male

DRUGS (13)
  1. HALDOL DECANOAT [Suspect]
     Indication: DRUG USE FOR UNKNOWN INDICATION
     Route: 030
  2. ERGENYL [Suspect]
     Route: 048
     Dates: start: 20090526, end: 20090605
  3. ERGENYL [Suspect]
     Route: 048
     Dates: start: 20090526, end: 20090605
  4. ERGENYL [Suspect]
     Route: 048
     Dates: start: 20090526, end: 20090605
  5. ERGENYL [Suspect]
     Indication: DRUG USE FOR UNKNOWN INDICATION
     Route: 048
     Dates: start: 20090526, end: 20090605
  6. QUILONUM RETARD [Interacting]
     Indication: DRUG USE FOR UNKNOWN INDICATION
     Route: 048
     Dates: end: 20090519
  7. EUNERPAN [Suspect]
     Route: 048
     Dates: end: 20090609
  8. EUNERPAN [Suspect]
     Route: 048
     Dates: end: 20090609
  9. EUNERPAN [Suspect]
     Indication: DRUG USE FOR UNKNOWN INDICATION
     Route: 048
     Dates: end: 20090609
  10. ENALAPRIL MALEATE [Interacting]
     Indication: DRUG USE FOR UNKNOWN INDICATION
     Route: 048
     Dates: end: 20090519
  11. AKINETON [Suspect]
     Indication: DRUG USE FOR UNKNOWN INDICATION
     Route: 048
  12. ALLOPURINOL [Suspect]
     Indication: DRUG USE FOR UNKNOWN INDICATION
     Route: 048
     Dates: end: 20090519
  13. TORSEMIDE [Concomitant]
     Route: 065
     Dates: start: 20090519

REACTIONS (3)
  - ATRIOVENTRICULAR BLOCK COMPLETE [None]
  - DRUG INTERACTION [None]
  - THERAPEUTIC AGENT TOXICITY [None]
